FAERS Safety Report 14420027 (Version 1)
Quarter: 2018Q1

REPORT INFORMATION
  Report Type: Spontaneous
  Country: US (occurrence: US)
  Receive Date: 20180122
  Receipt Date: 20180122
  Transmission Date: 20180509
  Serious: No
  Sender: FDA-Public Use
  Company Number: US-ROCHE-1857009

PATIENT
  Age: 56 Year
  Sex: Male
  Weight: 77.63 kg

DRUGS (10)
  1. BACTRIM [Concomitant]
     Active Substance: SULFAMETHOXAZOLE\TRIMETHOPRIM
     Indication: PROPHYLAXIS
     Dosage: DOUBLE STRENGTH
     Route: 048
     Dates: start: 20161004
  2. RITUXAN [Suspect]
     Active Substance: RITUXIMAB
     Indication: CHRONIC LYMPHOCYTIC LEUKAEMIA
     Dosage: ONCE
     Route: 041
     Dates: start: 20161004
  3. FLUDARA [Concomitant]
     Active Substance: FLUDARABINE PHOSPHATE
     Dosage: DOSE 3
     Route: 065
     Dates: start: 201611
  4. CYTOXAN [Concomitant]
     Active Substance: CYCLOPHOSPHAMIDE
     Dosage: DOSE 2
     Route: 065
     Dates: start: 20161101
  5. FLUDARA [Concomitant]
     Active Substance: FLUDARABINE PHOSPHATE
     Dosage: DOSE 2
     Route: 065
     Dates: start: 20161101
  6. ACYCLOVIR. [Concomitant]
     Active Substance: ACYCLOVIR
     Indication: PROPHYLAXIS
     Route: 048
     Dates: start: 20161004
  7. FLUDARA [Concomitant]
     Active Substance: FLUDARABINE PHOSPHATE
     Dosage: DOSE 1
     Route: 065
     Dates: start: 20161004
  8. CYTOXAN [Concomitant]
     Active Substance: CYCLOPHOSPHAMIDE
     Dosage: DOSE 3
     Route: 065
     Dates: start: 201611
  9. RITUXAN [Suspect]
     Active Substance: RITUXIMAB
     Dosage: ONCE
     Route: 041
     Dates: start: 20161101
  10. CYTOXAN [Concomitant]
     Active Substance: CYCLOPHOSPHAMIDE
     Dosage: DOSE 1
     Route: 065
     Dates: start: 20161004

REACTIONS (2)
  - Generalised erythema [Not Recovered/Not Resolved]
  - Infusion related reaction [Recovered/Resolved]

NARRATIVE: CASE EVENT DATE: 20161004
